FAERS Safety Report 24588509 (Version 1)
Quarter: 2024Q4

REPORT INFORMATION
  Report Type: Spontaneous
  Country: US (occurrence: US)
  Receive Date: 20241107
  Receipt Date: 20241107
  Transmission Date: 20250114
  Serious: No
  Sender: ASTELLAS
  Company Number: US-ASTELLAS-2024-AER-015617

PATIENT
  Sex: Female

DRUGS (1)
  1. SOLIFENACIN [Suspect]
     Active Substance: SOLIFENACIN
     Indication: Pollakiuria
     Dosage: MANUFACTURER IS CAMBER
     Route: 065

REACTIONS (1)
  - Drug ineffective [Unknown]
